FAERS Safety Report 18869673 (Version 4)
Quarter: 2021Q3

REPORT INFORMATION
  Report Type: Spontaneous
  Country: US (occurrence: US)
  Receive Date: 20210209
  Receipt Date: 20210907
  Transmission Date: 20211014
  Serious: Yes (Other)
  Sender: FDA-Public Use
  Company Number: US-PFIZER INC-2021120807

PATIENT
  Age: 65 Year
  Sex: Female

DRUGS (1)
  1. XELJANZ XR [Suspect]
     Active Substance: TOFACITINIB CITRATE
     Indication: RHEUMATOID ARTHRITIS
     Dosage: 11 MG, 1X/DAY
     Route: 048
     Dates: start: 20210125

REACTIONS (10)
  - Therapeutic response unexpected [Unknown]
  - Duodenitis [Unknown]
  - Abdominal pain upper [Unknown]
  - Pain [Recovering/Resolving]
  - Loss of consciousness [Unknown]
  - Blood pressure decreased [Unknown]
  - Headache [Unknown]
  - Migraine [Unknown]
  - Blood cholesterol increased [Recovered/Resolved]
  - Arthralgia [Unknown]
